FAERS Safety Report 6211772-8 (Version None)
Quarter: 2009Q2

REPORT INFORMATION
  Report Type: 
  Country: None (occurrence: None)
  Receive Date: 20090522
  Receipt Date: 20090324
  Transmission Date: 20091009
  Serious: No
  Sender: FDA-Public Use
  Company Number: 8044278

PATIENT
  Age: 21 Year
  Sex: Female
  Weight: 61.3 kg

DRUGS (2)
  1. CIMZIA [Suspect]
     Indication: CROHN'S DISEASE
     Dosage: 200 MG 1/2W SC
     Route: 058
     Dates: start: 20080501
  2. IMURAN [Concomitant]

REACTIONS (1)
  - ALOPECIA [None]
